FAERS Safety Report 8745997 (Version 2)
Quarter: 2012Q4

REPORT INFORMATION
  Report Type: 
  Country: US (occurrence: US)
  Receive Date: 20120827
  Receipt Date: 20120924
  Transmission Date: 20130627
  Serious: Yes (Hospitalization, Other)
  Sender: FDA-Public Use
  Company Number: US-JNJFOC-20120809974

PATIENT
  Age: 34 None
  Sex: Male

DRUGS (4)
  1. REMICADE [Suspect]
     Indication: CROHN^S DISEASE
     Dosage: 2 years
     Route: 042
     Dates: start: 20120627
  2. REMICADE [Suspect]
     Indication: CROHN^S DISEASE
     Dosage: 2 years
     Route: 042
     Dates: start: 20120502
  3. REMICADE [Suspect]
     Indication: CROHN^S DISEASE
     Dosage: 2 years
     Route: 042
     Dates: start: 20101222
  4. METHOTREXATE [Concomitant]
     Indication: CROHN^S DISEASE
     Dosage: 25 mg 10 tab once weekly
     Route: 065

REACTIONS (1)
  - Renal cell carcinoma [Recovering/Resolving]
